FAERS Safety Report 20824336 (Version 1)
Quarter: 2022Q2

REPORT INFORMATION
  Report Type: Spontaneous
  Country: JP (occurrence: JP)
  Receive Date: 20220513
  Receipt Date: 20220513
  Transmission Date: 20220721
  Serious: Yes (Hospitalization, Other)
  Sender: FDA-Public Use
  Company Number: JP-IPCA LABORATORIES LIMITED-IPC-2022-JP-000539

PATIENT

DRUGS (15)
  1. METOCLOPRAMIDE [Suspect]
     Active Substance: METOCLOPRAMIDE
     Indication: Vomiting
     Dosage: 10 MILLIGRAM
     Route: 042
  2. PRANLUKAST HEMIHYDRATE [Concomitant]
     Active Substance: PRANLUKAST HEMIHYDRATE
     Indication: Cough
     Dosage: UNK
     Route: 065
  3. THEOPHYLLINE [Concomitant]
     Active Substance: THEOPHYLLINE
     Indication: Cough
     Dosage: UNK
     Route: 065
  4. CYPROHEPTADINE HYDRROCHLORIDE HYDRATE [Concomitant]
     Indication: Cough
     Dosage: UNK
     Route: 065
  5. PROCATEROL HYDROCHLORIDE HYDRATE [Concomitant]
     Indication: Cough
     Dosage: UNK
     Route: 065
  6. CARBOCYSTEINE [Concomitant]
     Active Substance: CARBOCYSTEINE
     Indication: Cough
     Dosage: UNK
     Route: 065
  7. CLARISROMYCIN [Concomitant]
     Indication: Cough
     Dosage: UNK
     Route: 065
  8. HERBALS [Concomitant]
     Active Substance: HERBALS
     Indication: Cough
     Dosage: UNK
     Route: 065
  9. GUIZHI FULING PILLS [Concomitant]
     Indication: Cough
     Dosage: UNK
     Route: 065
  10. SEVOFLURANE [Concomitant]
     Active Substance: SEVOFLURANE
     Indication: Product used for unknown indication
     Dosage: 6 PERCENT
     Route: 065
  11. DEXAMETHASONE SODIUM PHOSPHATE [Concomitant]
     Active Substance: DEXAMETHASONE SODIUM PHOSPHATE
     Indication: Product used for unknown indication
     Dosage: 6.6 MILLIGRAM
     Route: 042
  12. ROCURONIUM BROMIDE [Concomitant]
     Active Substance: ROCURONIUM BROMIDE
     Indication: Product used for unknown indication
     Dosage: 50 MILLIGRAM
     Route: 042
  13. REMIFENTANIL [Concomitant]
     Active Substance: REMIFENTANIL
     Indication: Product used for unknown indication
     Dosage: 0.54 MICROGRAM PER KILOGRAM PER MINUTE
     Route: 065
  14. REMIFENTANIL [Concomitant]
     Active Substance: REMIFENTANIL
     Dosage: 0.2 MICROGRAM PER KILOGRAM PER MINUTE
     Route: 065
  15. DESULFURANE [Concomitant]
     Indication: Product used for unknown indication
     Dosage: 4 PERCENT
     Route: 065

REACTIONS (4)
  - Seizure [Recovered/Resolved]
  - Loss of consciousness [Recovered/Resolved]
  - Respiratory arrest [Recovered/Resolved]
  - Cyanosis [Recovered/Resolved]
